FAERS Safety Report 9670670 (Version 1)
Quarter: 2013Q4

REPORT INFORMATION
  Report Type: Spontaneous
  Country: US (occurrence: US)
  Receive Date: 20131106
  Receipt Date: 20131106
  Transmission Date: 20140711
  Serious: Yes (Hospitalization)
  Sender: FDA-Public Use
  Company Number: US-AMGEN-USASP2013077463

PATIENT
  Age: 75 Year
  Sex: 0

DRUGS (6)
  1. NEULASTA [Suspect]
     Indication: PRODUCT USED FOR UNKNOWN INDICATION
     Dosage: UNK
     Route: 065
  2. RITUXIMAB [Concomitant]
     Indication: NEOPLASM MALIGNANT
     Dosage: UNK
  3. CYCLOPHOSPHAMIDE [Concomitant]
     Indication: NEOPLASM MALIGNANT
     Dosage: UNK
  4. DOXORUBICIN [Concomitant]
     Indication: NEOPLASM MALIGNANT
     Dosage: UNK
  5. ONCOVIN [Concomitant]
     Indication: NEOPLASM MALIGNANT
     Dosage: UNK
  6. PREDNISOLONE [Concomitant]
     Indication: NEOPLASM MALIGNANT
     Dosage: UNK

REACTIONS (1)
  - Febrile neutropenia [Unknown]
